FAERS Safety Report 6847406-9 (Version None)
Quarter: 2010Q3

REPORT INFORMATION
  Report Type: 
  Country: None (occurrence: None)
  Receive Date: 20100713
  Receipt Date: 20100706
  Transmission Date: 20110219
  Serious: Yes (Death)
  Sender: FDA-Public Use
  Company Number: 2010EU003224

PATIENT
  Age: 29 Year
  Sex: Female

DRUGS (7)
  1. TACROLIMUS [Suspect]
     Indication: IMMUNOSUPPRESSION
  2. SIROLIMUS (RAPAMUNE) [Concomitant]
  3. RITUXIMAB (RITUXIMAB) [Concomitant]
  4. CAMPATH [Concomitant]
  5. METHOTREXATE [Concomitant]
  6. PENTOSTATIN (PENTOSTATIN) [Concomitant]
  7. PREDNISOLONE [Concomitant]

REACTIONS (6)
  - GRAFT VERSUS HOST DISEASE [None]
  - HYPOKALAEMIA [None]
  - KLEBSIELLA INFECTION [None]
  - LUNG INFILTRATION [None]
  - MULTI-ORGAN FAILURE [None]
  - ZYGOMYCOSIS [None]
